FAERS Safety Report 14821039 (Version 1)
Quarter: 2018Q2

REPORT INFORMATION
  Report Type: Spontaneous
  Country: US (occurrence: US)
  Receive Date: 20180417
  Receipt Date: 20180417
  Transmission Date: 20180711
  Serious: Yes (Hospitalization)
  Sender: FDA-Public Use
  Company Number: None

PATIENT
  Sex: Female

DRUGS (8)
  1. CLOBETASOL, MONTELUKAST [Concomitant]
  2. LISINOPRIL, ATORVASTATIN [Concomitant]
  3. HYDROCHLOROT, ZOLPIDEM [Concomitant]
  4. AMLODIPINE [Concomitant]
     Active Substance: AMLODIPINE BESYLATE
  5. CLONIDINE, VALSARTAN [Concomitant]
  6. NUCALA [Suspect]
     Active Substance: MEPOLIZUMAB
     Indication: ASTHMA
     Dosage: ?          OTHER FREQUENCY:Q 4 WEEKS;?
     Route: 058
     Dates: start: 20171214
  7. ASPIRIN LOW, OMEPRAZOLE [Concomitant]
  8. HYDROXYZ HCL, MOMETASONE [Concomitant]

REACTIONS (1)
  - Adverse drug reaction [None]
